FAERS Safety Report 12276619 (Version 1)
Quarter: 2016Q2

REPORT INFORMATION
  Report Type: Spontaneous
  Country: GB (occurrence: GB)
  Receive Date: 20160418
  Receipt Date: 20160418
  Transmission Date: 20160815
  Serious: Yes (Hospitalization, Other)
  Sender: FDA-Public Use
  Company Number: GB-GLAXOSMITHKLINE-GB2016048348

PATIENT
  Age: 86 Year
  Sex: Male

DRUGS (12)
  1. CALCICHEW [Concomitant]
     Active Substance: CALCIUM CARBONATE
     Dosage: TAKES BEFORE BED. PLAN TO INCREASE TO 3 A DAY WITH MEALS TO TRY TO GET PHOSPHATE LEVEL DOWN.
  2. LEVOTHYROXINE. [Concomitant]
     Active Substance: LEVOTHYROXINE
     Dosage: 150 MG, UNK
  3. ONEALFA [Concomitant]
     Active Substance: ALFACALCIDOL
     Dosage: 10 ?G, UNK
  4. DIGOXIN. [Concomitant]
     Active Substance: DIGOXIN
     Dosage: 62.5 ?G, UNK
  5. EPREX [Concomitant]
     Active Substance: ERYTHROPOIETIN
     Dosage: 2000 UNITS TWICE A WEEK.
  6. ISOSORBIDE MONONITRATE. [Concomitant]
     Active Substance: ISOSORBIDE MONONITRATE
     Dosage: 10 MG, BID
  7. AMITRIPTYLINE [Concomitant]
     Active Substance: AMITRIPTYLINE
     Dosage: 10-20MG AT NIGHT
  8. ALLOPURINOL. [Concomitant]
     Active Substance: ALLOPURINOL
     Indication: GOUT
     Dosage: UNK
  9. ACICLOVIR [Suspect]
     Active Substance: ACYCLOVIR
     Indication: HERPES ZOSTER
     Dosage: 800 MG, UNK
     Route: 048
     Dates: start: 20151025
  10. VENOFER [Concomitant]
     Active Substance: IRON SUCROSE
     Dosage: 50 MG, UNK
  11. CARVEDILOL. [Concomitant]
     Active Substance: CARVEDILOL
     Dosage: 3.125 MG, UNK
  12. ALU-CAP [Concomitant]
     Dosage: UNK

REACTIONS (2)
  - Drug prescribing error [Unknown]
  - Confusional state [Recovered/Resolved]

NARRATIVE: CASE EVENT DATE: 20151027
